FAERS Safety Report 16286697 (Version 2)
Quarter: 2019Q2

REPORT INFORMATION
  Report Type: Spontaneous
  Country: US (occurrence: US)
  Receive Date: 20190508
  Receipt Date: 20190517
  Transmission Date: 20190711
  Serious: No
  Sender: FDA-Public Use
  Company Number: US-GLAXOSMITHKLINE-US2019077489

PATIENT
  Age: 61 Year
  Sex: Female

DRUGS (2)
  1. XYLITOL [Suspect]
     Active Substance: XYLITOL
     Indication: PRODUCT USED FOR UNKNOWN INDICATION
     Dosage: UNK
  2. FLONASE SENSIMIST ALLERGY RELIEF [Suspect]
     Active Substance: FLUTICASONE FUROATE
     Indication: HYPERSENSITIVITY
     Dosage: I AM DOING HALF DOSE OF ONE SQUIRT
     Route: 045
     Dates: start: 20190424

REACTIONS (7)
  - Headache [Not Recovered/Not Resolved]
  - Pharyngeal swelling [Not Recovered/Not Resolved]
  - Tremor [Not Recovered/Not Resolved]
  - Incorrect dose administered [Unknown]
  - Upper-airway cough syndrome [Not Recovered/Not Resolved]
  - Head discomfort [Not Recovered/Not Resolved]
  - Nervousness [Unknown]

NARRATIVE: CASE EVENT DATE: 20190424
